FAERS Safety Report 13162056 (Version 3)
Quarter: 2017Q2

REPORT INFORMATION
  Report Type: Spontaneous
  Country: US (occurrence: US)
  Receive Date: 20170130
  Receipt Date: 20170622
  Transmission Date: 20170830
  Serious: Yes (Death, Hospitalization, Other)
  Sender: FDA-Public Use
  Company Number: US-PFIZER INC-2017034838

PATIENT
  Age: 72 Year
  Sex: Male

DRUGS (3)
  1. SUTENT [Suspect]
     Active Substance: SUNITINIB MALATE
     Indication: RENAL CANCER METASTATIC
     Dosage: 50 MG, CYCLIC (DAILY 4 WKS. ON 2 WKS. OFF)
     Dates: start: 20130923, end: 20141103
  2. SUTENT [Suspect]
     Active Substance: SUNITINIB MALATE
     Dosage: 50 MG, CYCLIC (DAILY 4 WKS. ON 2 WKS. OFF)
     Dates: start: 20160517
  3. SUTENT [Suspect]
     Active Substance: SUNITINIB MALATE
     Dosage: 50 MG, CYCLIC (DAILY 4 WKS. ON 2 WKS. OFF)
     Dates: start: 20141103

REACTIONS (4)
  - Rectal haemorrhage [Not Recovered/Not Resolved]
  - Neoplasm recurrence [Unknown]
  - Haemorrhoids [Unknown]
  - Haemorrhage [Fatal]

NARRATIVE: CASE EVENT DATE: 201606
